FAERS Safety Report 5617277-7 (Version None)
Quarter: 2008Q1

REPORT INFORMATION
  Report Type: 
  Country: None (occurrence: None)
  Receive Date: 20080207
  Receipt Date: 20070629
  Transmission Date: 20080703
  Serious: No
  Sender: FDA-Public Use
  Company Number: A0661015A

PATIENT
  Age: 72 Year
  Sex: Male

DRUGS (3)
  1. PAXIL [Suspect]
     Indication: DEPRESSION
     Route: 048
  2. WELLBUTRIN [Suspect]
     Indication: DEPRESSION
     Dosage: 150MG PER DAY
     Route: 048
  3. LEXAPRO [Concomitant]

REACTIONS (1)
  - BREAST ENLARGEMENT [None]
